FAERS Safety Report 8993520 (Version 3)
Quarter: 2015Q3

REPORT INFORMATION
  Report Type: Spontaneous
  Country: FR (occurrence: FR)
  Receive Date: 20130102
  Receipt Date: 20150805
  Transmission Date: 20151125
  Serious: Yes (Hospitalization, Other)
  Sender: FDA-Public Use
  Company Number: FR-BRISTOL-MYERS SQUIBB COMPANY-17244146

PATIENT
  Age: 9 Year
  Sex: Female

DRUGS (9)
  1. RIFADINE [Suspect]
     Active Substance: RIFAMPIN
     Indication: ABSCESS
     Dosage: UNK
     Route: 065
     Dates: start: 20121025, end: 20121029
  2. CODENFAN [Suspect]
     Active Substance: CODEINE
     Indication: PAIN
     Dosage: 1DF:1MG/ML  SYRUP
     Route: 065
     Dates: start: 20120924, end: 20120925
  3. ORBENINE [Suspect]
     Active Substance: CLOXACILLIN SODIUM
     Indication: ABSCESS
     Dosage: UNK
     Route: 065
     Dates: start: 20121011, end: 20121024
  4. PERFALGAN [Suspect]
     Active Substance: ACETAMINOPHEN
     Indication: PYREXIA
     Dosage: UNK
     Route: 042
     Dates: start: 20120924, end: 20120925
  5. AMIKACIN SULFATE. [Suspect]
     Active Substance: AMIKACIN SULFATE
     Indication: ABSCESS
     Dosage: UNK
     Route: 065
     Dates: start: 20121002, end: 20121004
  6. BRISTOPEN [Suspect]
     Active Substance: OXACILLIN SODIUM
     Indication: ABSCESS
     Dosage: UNK
     Route: 065
     Dates: start: 20121005, end: 20121011
  7. COLCHICINE. [Suspect]
     Active Substance: COLCHICINE
     Indication: PERICARDITIS
     Dosage: UNK
     Route: 048
     Dates: start: 20121002, end: 20121024
  8. DALACINE [Suspect]
     Active Substance: CLINDAMYCIN HYDROCHLORIDE
     Indication: ABSCESS
     Dosage: UNK
     Route: 065
     Dates: start: 20121002, end: 20121024
  9. AUGMENTIN [Suspect]
     Active Substance: AMOXICILLIN\CLAVULANATE POTASSIUM
     Indication: ABSCESS
     Dosage: UNK
     Route: 048
     Dates: start: 20121002, end: 20121005

REACTIONS (1)
  - Drug reaction with eosinophilia and systemic symptoms [Recovered/Resolved]

NARRATIVE: CASE EVENT DATE: 20121027
